FAERS Safety Report 7605070-5 (Version None)
Quarter: 2011Q3

REPORT INFORMATION
  Report Type: 
  Country: None (occurrence: None)
  Receive Date: 20110713
  Receipt Date: 20090822
  Transmission Date: 20111222
  Serious: Yes (Death, Other)
  Sender: FDA-Public Use
  Company Number: US-BAYER-200930566NA

PATIENT
  Age: 74 Year
  Sex: Female
  Weight: 46.259 kg

DRUGS (15)
  1. ALPROFEN [Concomitant]
     Dosage: 150 MG, QD
     Route: 048
  2. LEVOPHED [Concomitant]
     Dosage: UNK
     Route: 042
     Dates: start: 20041209
  3. HEPARIN [Concomitant]
  4. PHENYLEPHRINE HCL [Concomitant]
  5. LASIX [Concomitant]
     Dosage: 40 MG, QD
     Route: 048
  6. EPINEPHRINE [Concomitant]
     Dosage: UNK
     Route: 042
     Dates: start: 20041209
  7. FRESH FROZEN PLASMA [Concomitant]
     Dosage: 2 U, ONCE
     Route: 042
  8. PROTAMINE SULFATE [Concomitant]
     Dosage: 250 MG
     Route: 042
     Dates: start: 20041209
  9. PROPOFOL [Concomitant]
  10. TRASYLOL [Suspect]
     Dosage: 100 ML CARDIOPULMONARY BYPASS PRIME
     Dates: start: 20041209
  11. TRUSOPT [Concomitant]
     Dosage: UNK UNK, BID
  12. TRASYLOL [Suspect]
     Indication: MITRAL VALVE REPLACEMENT
     Dosage: 200 ML, LOADING DOSE
     Route: 042
     Dates: start: 20041209, end: 20041209
  13. TRASYLOL [Suspect]
     Indication: AORTIC VALVE REPLACEMENT
     Dosage: 25 ML/HOUR
     Route: 042
     Dates: start: 20041209, end: 20041209
  14. ACETYLSALICYLIC ACID SRT [Concomitant]
     Dosage: UNK UNK, QD
     Route: 048
  15. PLATELETS [Concomitant]
     Dosage: 1 U, ONCE
     Route: 042

REACTIONS (5)
  - RENAL FAILURE ACUTE [None]
  - UNEVALUABLE EVENT [None]
  - RENAL FAILURE [None]
  - INJURY [None]
  - PAIN [None]
